FAERS Safety Report 13952434 (Version 1)
Quarter: 2017Q3

REPORT INFORMATION
  Report Type: Spontaneous
  Country: US (occurrence: US)
  Receive Date: 20170911
  Receipt Date: 20170911
  Transmission Date: 20171128
  Serious: No
  Sender: FDA-Public Use
  Company Number: US-TEVA-727379ACC

PATIENT
  Sex: Female

DRUGS (1)
  1. FENTANYL. [Suspect]
     Active Substance: FENTANYL
     Indication: FIBROMYALGIA
     Dosage: 25MCG 5
     Route: 065
     Dates: start: 20161111

REACTIONS (8)
  - Depression [Unknown]
  - Insomnia [Unknown]
  - Fatigue [Unknown]
  - Scab [Unknown]
  - Withdrawal syndrome [Unknown]
  - Scar [Unknown]
  - Chills [Unknown]
  - Asthenia [Unknown]
